FAERS Safety Report 7173961-8 (Version None)
Quarter: 2010Q4

REPORT INFORMATION
  Report Type: 
  Country: None (occurrence: None)
  Receive Date: 20101219
  Receipt Date: 20100315
  Transmission Date: 20110411
  Serious: No
  Sender: FDA-Public Use
  Company Number: US-AMGEN-KDL399973

PATIENT

DRUGS (2)
  1. ENBREL [Suspect]
     Indication: ANKYLOSING SPONDYLITIS
     Dosage: 50 MG, UNK
     Route: 058
     Dates: start: 20040701
  2. UNSPECIFIED MEDICATION [Concomitant]

REACTIONS (5)
  - ANKYLOSING SPONDYLITIS [None]
  - FALSE POSITIVE TUBERCULOSIS TEST [None]
  - INJECTION SITE PAIN [None]
  - LUNG DISORDER [None]
  - POSITRON EMISSION TOMOGRAM ABNORMAL [None]
